FAERS Safety Report 5924878-5 (Version None)
Quarter: 2008Q4

REPORT INFORMATION
  Report Type: 
  Country: None (occurrence: None)
  Receive Date: 20081017
  Receipt Date: 20081017
  Transmission Date: 20090506
  Serious: No
  Sender: FDA-Public Use
  Company Number: None

PATIENT
  Age: 70 Year
  Sex: Male
  Weight: 124.7392 kg

DRUGS (1)
  1. REQUIP [Suspect]
     Indication: MUSCLE SPASMS
     Dates: start: 20080401, end: 20080929

REACTIONS (4)
  - ABDOMINAL DISCOMFORT [None]
  - DYSSTASIA [None]
  - LOSS OF CONSCIOUSNESS [None]
  - SYNCOPE [None]
